FAERS Safety Report 8735793 (Version 2)
Quarter: 2012Q4

REPORT INFORMATION
  Report Type: 
  Country: US (occurrence: US)
  Receive Date: 20120822
  Receipt Date: 20120905
  Transmission Date: 20130627
  Serious: Yes (Hospitalization)
  Sender: FDA-Public Use
  Company Number: US-ELI_LILLY_AND_COMPANY-US201208003271

PATIENT
  Age: 65 Year
  Sex: Female

DRUGS (4)
  1. FORTEO [Suspect]
     Dosage: 20 ug, qd
     Dates: start: 20120703, end: 20120715
  2. GABAPENTIN [Concomitant]
     Dosage: 300 mg, tid
  3. BENAZEPRIL [Concomitant]
     Dosage: 40 mg, qd
  4. SENOKOT [Concomitant]
     Dosage: UNK, qod

REACTIONS (5)
  - Back pain [Unknown]
  - Spondylolisthesis [Unknown]
  - Neuralgia [Unknown]
  - Constipation [Unknown]
  - Musculoskeletal chest pain [Unknown]
